FAERS Safety Report 23904962 (Version 1)
Quarter: 2024Q2

REPORT INFORMATION
  Report Type: Spontaneous
  Country: CN (occurrence: CN)
  Receive Date: 20240527
  Receipt Date: 20240527
  Transmission Date: 20240716
  Serious: Yes (Hospitalization)
  Sender: FDA-Public Use
  Company Number: CN-Inventia-000725

PATIENT
  Age: 67 Year
  Sex: Female

DRUGS (7)
  1. DULOXETINE [Interacting]
     Active Substance: DULOXETINE
     Indication: Depression
     Dosage: MAXIMUM DAILY DOSE OF 60 MG
  2. ESCITALOPRAM [Interacting]
     Active Substance: ESCITALOPRAM OXALATE
     Indication: Depression
  3. CITALOPRAM [Suspect]
     Active Substance: CITALOPRAM\CITALOPRAM HYDROBROMIDE
     Indication: Depression
  4. VENLAFAXINE [Concomitant]
     Active Substance: VENLAFAXINE HYDROCHLORIDE
     Indication: Depression
  5. BUPROPION [Concomitant]
     Active Substance: BUPROPION
     Indication: Depression
  6. TRAZODONE [Concomitant]
     Active Substance: TRAZODONE HYDROCHLORIDE
     Indication: Depression
  7. CLONAZEPAM [Concomitant]
     Active Substance: CLONAZEPAM
     Indication: Poor quality sleep

REACTIONS (3)
  - Restless arm syndrome [Recovered/Resolved]
  - Drug interaction [Unknown]
  - Drug level increased [Unknown]

NARRATIVE: CASE EVENT DATE: 20221201
